FAERS Safety Report 23849785 (Version 5)
Quarter: 2025Q1

REPORT INFORMATION
  Report Type: Spontaneous
  Country: FR (occurrence: FR)
  Receive Date: 20240513
  Receipt Date: 20250103
  Transmission Date: 20250408
  Serious: Yes (Life-Threatening, Disabling, Other)
  Sender: ALEXION PHARMACEUTICALS
  Company Number: 2024A110834

PATIENT
  Age: 33 Year
  Weight: 86 kg

DRUGS (28)
  1. ESOMEPRAZOLE [Suspect]
     Active Substance: ESOMEPRAZOLE
     Indication: Abdominal discomfort
     Dosage: 40 MILLIGRAM, 1/DAY
  2. ESOMEPRAZOLE [Suspect]
     Active Substance: ESOMEPRAZOLE
     Dosage: 40 MILLIGRAM, 1/DAY
     Route: 048
  3. ESOMEPRAZOLE [Suspect]
     Active Substance: ESOMEPRAZOLE
     Dosage: 40 MILLIGRAM, 1/DAY
  4. ESOMEPRAZOLE [Suspect]
     Active Substance: ESOMEPRAZOLE
     Dosage: 40 MILLIGRAM, 1/DAY
     Route: 048
  5. ASTRAZENECA COVID-19 VACCINE [Suspect]
     Active Substance: AZD-1222
     Indication: Product used for unknown indication
  6. ASTRAZENECA COVID-19 VACCINE [Suspect]
     Active Substance: AZD-1222
     Route: 030
  7. ASTRAZENECA COVID-19 VACCINE [Suspect]
     Active Substance: AZD-1222
  8. ASTRAZENECA COVID-19 VACCINE [Suspect]
     Active Substance: AZD-1222
     Route: 030
  9. ELIQUIS [Suspect]
     Active Substance: APIXABAN
     Indication: Thrombosis
     Dosage: 5 MILLIGRAM, 2/DAY
  10. ELIQUIS [Suspect]
     Active Substance: APIXABAN
     Indication: Phlebitis
     Dosage: 5 MILLIGRAM, 2/DAY
     Route: 048
  11. ELIQUIS [Suspect]
     Active Substance: APIXABAN
     Dosage: 5 MILLIGRAM, 2/DAY
  12. ELIQUIS [Suspect]
     Active Substance: APIXABAN
     Dosage: 5 MILLIGRAM, 2/DAY
     Route: 048
  13. LYRICA [Suspect]
     Active Substance: PREGABALIN
     Indication: Facial pain
     Dosage: 600 MILLIGRAM, 2/DAY
  14. LYRICA [Suspect]
     Active Substance: PREGABALIN
     Dosage: 600 MILLIGRAM, 2/DAY
     Route: 048
  15. LYRICA [Suspect]
     Active Substance: PREGABALIN
     Dosage: 600 MILLIGRAM, 2/DAY
  16. LYRICA [Suspect]
     Active Substance: PREGABALIN
     Dosage: 600 MILLIGRAM, 2/DAY
     Route: 048
  17. RIVOTRIL [Suspect]
     Active Substance: CLONAZEPAM
     Indication: Facial pain
     Dosage: UNK UNK, 1/DAY
  18. RIVOTRIL [Suspect]
     Active Substance: CLONAZEPAM
     Dosage: UNK UNK, 1/DAY
     Route: 048
  19. RIVOTRIL [Suspect]
     Active Substance: CLONAZEPAM
  20. RIVOTRIL [Suspect]
     Active Substance: CLONAZEPAM
     Route: 048
  21. TRAMADOL [Concomitant]
     Active Substance: TRAMADOL
     Indication: Pain
     Dosage: 200 MILLIGRAM, 2/DAY
  22. TRAMADOL [Concomitant]
     Active Substance: TRAMADOL
     Dosage: 200 MILLIGRAM, 2/DAY
     Route: 048
  23. TRAMADOL [Concomitant]
     Active Substance: TRAMADOL
     Dosage: 200 MILLIGRAM, 2/DAY
  24. TRAMADOL [Concomitant]
     Active Substance: TRAMADOL
     Dosage: 200 MILLIGRAM, 2/DAY
     Route: 048
  25. TEMESTA [Concomitant]
     Indication: Insomnia
     Route: 048
  26. TEMESTA [Concomitant]
  27. DESOBEL [Concomitant]
     Indication: Ill-defined disorder
     Dosage: 30 MILLIGRAM, 1/DAY
     Route: 048
  28. DESOBEL [Concomitant]
     Dosage: 30 MILLIGRAM, 1/DAY

REACTIONS (8)
  - Staphylococcal skin infection [Unknown]
  - Phlebitis [Not Recovered/Not Resolved]
  - Thrombosis [Not Recovered/Not Resolved]
  - Arthropathy [Unknown]
  - Intervertebral disc protrusion [Unknown]
  - Staphylococcal infection [Unknown]
  - Staphylococcal infection [Unknown]
  - Arthropathy [Unknown]
